FAERS Safety Report 7671082-9 (Version None)
Quarter: 2011Q3

REPORT INFORMATION
  Report Type: 
  Country: None (occurrence: None)
  Receive Date: 20110808
  Receipt Date: 20110808
  Transmission Date: 20111222
  Serious: Yes (Other)
  Sender: FDA-Public Use
  Company Number: None

PATIENT
  Age: 41 Year
  Sex: Male
  Weight: 124 kg

DRUGS (3)
  1. TOPIRAMATE [Suspect]
     Indication: DEPRESSION
     Dosage: 50MG EVERY DAY PO
     Route: 048
     Dates: start: 20110307, end: 20110320
  2. TOPIRAMATE [Suspect]
     Indication: PSYCHOTIC DISORDER
     Dosage: 50MG EVERY DAY PO
     Route: 048
     Dates: start: 20110307, end: 20110320
  3. TOPIRAMATE [Suspect]
     Indication: POST-TRAUMATIC STRESS DISORDER
     Dosage: 50MG EVERY DAY PO
     Route: 048
     Dates: start: 20110307, end: 20110320

REACTIONS (1)
  - SUICIDE ATTEMPT [None]
